APPROVED DRUG PRODUCT: CLOMIPRAMINE HYDROCHLORIDE
Active Ingredient: CLOMIPRAMINE HYDROCHLORIDE
Strength: 75MG
Dosage Form/Route: CAPSULE;ORAL
Application: A216440 | Product #003 | TE Code: AB
Applicant: AUROBINDO PHARMA LTD
Approved: Mar 20, 2023 | RLD: No | RS: No | Type: RX